FAERS Safety Report 18640392 (Version 1)
Quarter: 2020Q4

REPORT INFORMATION
  Report Type: Spontaneous
  Country: US (occurrence: US)
  Receive Date: 20201221
  Receipt Date: 20201221
  Transmission Date: 20210114
  Serious: No
  Sender: FDA-Public Use
  Company Number: US-CELLTRION INC.-2020US022748

PATIENT

DRUGS (16)
  1. TRUXIMA [Suspect]
     Active Substance: RITUXIMAB-ABBS
     Dosage: 375MG/M2 (800MG) WEEKLY
     Route: 042
     Dates: start: 202008
  2. OMEPRAZOLE. [Concomitant]
     Active Substance: OMEPRAZOLE
     Dosage: 20MG QDAY, 0 REFILL(S)
     Route: 048
  3. PREDNISONE. [Concomitant]
     Active Substance: PREDNISONE
     Dosage: 10 MG, 7 TAB, QDAY, 210 TAB, 0 REFILLS(S)
     Route: 048
  4. BENADRYL [Concomitant]
     Active Substance: DIPHENHYDRAMINE HYDROCHLORIDE
     Dosage: 50 MG ONCE PRN
     Route: 042
  5. BENADRYL [Concomitant]
     Active Substance: DIPHENHYDRAMINE HYDROCHLORIDE
     Indication: PREMEDICATION
     Dosage: 25 MG
     Route: 048
  6. PREDNISONE. [Concomitant]
     Active Substance: PREDNISONE
     Dosage: 10 MG, QDAY 0 REFILLS(S)
     Route: 048
  7. BENADRYL [Concomitant]
     Active Substance: DIPHENHYDRAMINE HYDROCHLORIDE
     Dosage: 25 MG
     Route: 042
  8. SOLU-MEDROL [Concomitant]
     Active Substance: METHYLPREDNISOLONE SODIUM SUCCINATE
     Indication: PREMEDICATION
     Dosage: 100 MG
     Route: 042
  9. TYLENOL [Concomitant]
     Active Substance: ACETAMINOPHEN
     Indication: PREMEDICATION
     Dosage: 1 GRAM
     Route: 048
  10. METFORMIN [Concomitant]
     Active Substance: METFORMIN HYDROCHLORIDE
     Dosage: 500 MG, QDAY BKFST, WHILE ON STEROIDS, 30 TAB, 0 REFILL(S)
     Route: 048
  11. TRUXIMA [Suspect]
     Active Substance: RITUXIMAB-ABBS
     Dosage: 375MG/M2 (800MG) WEEKLY
     Route: 042
  12. TYLENOL [Concomitant]
     Active Substance: ACETAMINOPHEN
     Dosage: 650 MG, ONCE PRN
     Route: 048
  13. METFORMIN [Concomitant]
     Active Substance: METFORMIN HYDROCHLORIDE
     Dosage: 500 MG, QDAY WITH MEALS, 30 TAB, 0 REFILL(S)
     Route: 048
  14. BACTRIM DS [Concomitant]
     Active Substance: SULFAMETHOXAZOLE\TRIMETHOPRIM
     Indication: PROPHYLAXIS
     Dosage: 800MG-160MG, QMWF, 30 TAB, 0 REFILL(S)
     Route: 048
  15. TRUXIMA [Suspect]
     Active Substance: RITUXIMAB-ABBS
     Indication: GRANULOMATOSIS WITH POLYANGIITIS
     Dosage: 375MG/M2 (800MG) WEEKLY
     Route: 042
     Dates: start: 20200523
  16. TRUXIMA [Suspect]
     Active Substance: RITUXIMAB-ABBS
     Dosage: 375MG/M2 (800MG) WEEKLY
     Route: 042

REACTIONS (2)
  - Rash [Unknown]
  - Infusion related reaction [Unknown]
